FAERS Safety Report 24270135 (Version 1)
Quarter: 2024Q3

REPORT INFORMATION
  Report Type: Spontaneous
  Country: US (occurrence: None)
  Receive Date: 20240829
  Receipt Date: 20240829
  Transmission Date: 20241017
  Serious: No
  Sender: Public
  Company Number: None

PATIENT
  Age: 45 Year
  Sex: Female

DRUGS (1)
  1. RINVOQ [Suspect]
     Active Substance: UPADACITINIB
     Dosage: FREQUENCY : DAILY;?
     Route: 048
     Dates: start: 20240805

REACTIONS (6)
  - Fungal infection [None]
  - Fatigue [None]
  - Headache [None]
  - Hypoaesthesia oral [None]
  - Heavy menstrual bleeding [None]
  - Adverse drug reaction [None]

NARRATIVE: CASE EVENT DATE: 20240829
